FAERS Safety Report 15178927 (Version 6)
Quarter: 2022Q3

REPORT INFORMATION
  Report Type: Spontaneous
  Country: BE (occurrence: BE)
  Receive Date: 20180723
  Receipt Date: 20220705
  Transmission Date: 20221027
  Serious: Yes (Other)
  Sender: FDA-Public Use
  Company Number: None

PATIENT
  Age: 75 Year
  Sex: Male
  Weight: 79 kg

DRUGS (89)
  1. PRIVIGEN [Suspect]
     Active Substance: HUMAN IMMUNOGLOBULIN G
     Indication: Product used for unknown indication
     Dosage: UNK
     Route: 051
  2. PONATINIB [Suspect]
     Active Substance: PONATINIB
     Indication: Philadelphia positive acute lymphocytic leukaemia
     Dosage: 30 MG, QD
     Route: 048
     Dates: start: 20160502, end: 20160530
  3. PONATINIB [Suspect]
     Active Substance: PONATINIB
     Dosage: 45 MG, QD
     Route: 048
     Dates: start: 20160530, end: 20160726
  4. PONATINIB [Suspect]
     Active Substance: PONATINIB
     Dosage: 15 MG, QD
     Route: 048
     Dates: start: 20160824, end: 20160906
  5. PONATINIB [Suspect]
     Active Substance: PONATINIB
     Dosage: 45 MG, QD
     Route: 048
     Dates: start: 20161005, end: 20170130
  6. PONATINIB [Suspect]
     Active Substance: PONATINIB
     Dosage: 45 MG, QD
     Route: 048
     Dates: start: 20170308, end: 20170515
  7. PANTOMED                           /00178901/ [Concomitant]
     Indication: Product used for unknown indication
     Dosage: 40 MG, QD
     Route: 048
     Dates: start: 20170611
  8. PANTOMED                           /00178901/ [Concomitant]
     Dosage: 40 MG, QD
     Route: 048
     Dates: start: 20170613
  9. PANTOMED                           /00178901/ [Concomitant]
     Dosage: 40 MG, QD
     Route: 048
     Dates: start: 20170612
  10. MIDAZOLAM HYDROCHLORIDE [Concomitant]
     Active Substance: MIDAZOLAM HYDROCHLORIDE
     Indication: Product used for unknown indication
     Dosage: 7.5 MG, QD
     Route: 040
     Dates: start: 20170613
  11. MIDAZOLAM HYDROCHLORIDE [Concomitant]
     Active Substance: MIDAZOLAM HYDROCHLORIDE
     Indication: Restlessness
     Dosage: 10 MG, QD, 4X2.5 MG
     Route: 058
     Dates: start: 20170613
  12. MIDAZOLAM HYDROCHLORIDE [Concomitant]
     Active Substance: MIDAZOLAM HYDROCHLORIDE
     Dosage: 30 MG, QD
     Route: 042
     Dates: start: 20170613
  13. MIDAZOLAM HYDROCHLORIDE [Concomitant]
     Active Substance: MIDAZOLAM HYDROCHLORIDE
     Dosage: UNK
     Route: 042
  14. NEUPOGEN [Concomitant]
     Active Substance: FILGRASTIM
     Indication: Product used for unknown indication
     Dosage: UNK
     Route: 042
     Dates: start: 20170612
  15. FOLIC ACID [Concomitant]
     Active Substance: FOLIC ACID
     Indication: Product used for unknown indication
     Dosage: 4 MG, QD
     Route: 065
     Dates: start: 20170613
  16. FOLIC ACID [Concomitant]
     Active Substance: FOLIC ACID
     Dosage: 4 MG, QD
     Route: 048
     Dates: start: 20170611
  17. FOLIC ACID [Concomitant]
     Active Substance: FOLIC ACID
     Dosage: 4 MG, QD
     Route: 065
     Dates: start: 20170612
  18. MEROPENEM FRESENIUS [Concomitant]
     Indication: Product used for unknown indication
     Dosage: UNK
     Route: 042
     Dates: start: 20170609
  19. MEROPENEM FRESENIUS [Concomitant]
     Dosage: UNK
     Route: 042
     Dates: start: 20170613
  20. MEROPENEM FRESENIUS [Concomitant]
     Dosage: 1 DF, TID
     Route: 042
     Dates: start: 20170610
  21. MEROPENEM FRESENIUS [Concomitant]
     Dosage: UNK
     Route: 042
     Dates: start: 20170611
  22. MEROPENEM FRESENIUS [Concomitant]
     Dosage: UNK
     Route: 042
     Dates: start: 20170612
  23. AMBISOME [Concomitant]
     Active Substance: AMPHOTERICIN B
     Indication: Product used for unknown indication
     Dosage: UNK
     Route: 042
     Dates: start: 20170611
  24. AMBISOME [Concomitant]
     Active Substance: AMPHOTERICIN B
     Dosage: UNK
     Route: 042
     Dates: start: 20170612
  25. ACETAMINOPHEN [Concomitant]
     Active Substance: ACETAMINOPHEN
     Indication: Pyrexia
     Dosage: 1 G, BID
     Route: 042
     Dates: start: 20170613
  26. ACETAMINOPHEN [Concomitant]
     Active Substance: ACETAMINOPHEN
     Dosage: 1 G, BID
     Route: 042
     Dates: start: 20170612
  27. ACETAMINOPHEN [Concomitant]
     Active Substance: ACETAMINOPHEN
     Dosage: 1 G, QD
     Route: 042
     Dates: start: 20170611
  28. LITICAN                            /00690801/ [Concomitant]
     Indication: Nausea
     Dosage: 300 MG, QD, 6X50 MG
     Route: 048
     Dates: start: 20170613
  29. LITICAN                            /00690801/ [Concomitant]
     Indication: Pain
     Dosage: 300 MG, QD, 6X50 MG
     Route: 048
     Dates: start: 20170611
  30. LITICAN                            /00690801/ [Concomitant]
     Indication: Product used for unknown indication
     Dosage: UNK
     Route: 042
     Dates: start: 20170611
  31. LITICAN                            /00690801/ [Concomitant]
     Dosage: UNK
     Route: 042
     Dates: start: 20170613
  32. LITICAN                            /00690801/ [Concomitant]
     Dosage: UNK
     Route: 042
     Dates: start: 20170611
  33. LITICAN                            /00690801/ [Concomitant]
     Dosage: 300 MG, QD, 6X50 MG
     Route: 048
     Dates: start: 20170610
  34. LITICAN                            /00690801/ [Concomitant]
     Dosage: UNK
     Route: 042
  35. LITICAN                            /00690801/ [Concomitant]
     Dosage: 300 MG, QD, 6X50 MG
     Route: 048
     Dates: start: 20170612
  36. LITICAN                            /00690801/ [Concomitant]
     Dosage: UNK
     Route: 042
     Dates: start: 20170612
  37. DEXTROSE [Concomitant]
     Active Substance: DEXTROSE
     Indication: Product used for unknown indication
     Dosage: 100 ML, QD
     Route: 042
     Dates: start: 20170611
  38. VALACYCLOVIR HYDROCHLORIDE [Concomitant]
     Active Substance: VALACYCLOVIR HYDROCHLORIDE
     Indication: Product used for unknown indication
     Dosage: 1000 MG, QD
     Route: 048
     Dates: start: 20170613
  39. VALACYCLOVIR HYDROCHLORIDE [Concomitant]
     Active Substance: VALACYCLOVIR HYDROCHLORIDE
     Dosage: 1000 MG, QD
     Route: 048
     Dates: start: 20170611
  40. VALACYCLOVIR HYDROCHLORIDE [Concomitant]
     Active Substance: VALACYCLOVIR HYDROCHLORIDE
     Dosage: 1000 MG, QD
     Route: 048
     Dates: start: 20170612
  41. ALLOPURINOL [Concomitant]
     Active Substance: ALLOPURINOL
     Indication: Product used for unknown indication
     Dosage: 300 MG, QD
     Route: 048
     Dates: start: 20170613
  42. ALLOPURINOL [Concomitant]
     Active Substance: ALLOPURINOL
     Dosage: 300 MG, QD
     Route: 048
     Dates: start: 20170611
  43. ALLOPURINOL [Concomitant]
     Active Substance: ALLOPURINOL
     Dosage: 300 MG, QD
     Route: 048
     Dates: start: 20170612
  44. SODIUM CHLORIDE [Concomitant]
     Active Substance: SODIUM CHLORIDE
     Indication: Pain
     Dosage: UNK
     Route: 042
     Dates: start: 20170611
  45. SODIUM CHLORIDE [Concomitant]
     Active Substance: SODIUM CHLORIDE
     Dosage: UNK
     Route: 042
     Dates: start: 20170612
  46. SODIUM CHLORIDE [Concomitant]
     Active Substance: SODIUM CHLORIDE
     Dosage: UNK
     Route: 065
  47. SODIUM CHLORIDE [Concomitant]
     Active Substance: SODIUM CHLORIDE
     Dosage: UNK
     Route: 042
     Dates: start: 20170613
  48. SODIUM CHLORIDE [Concomitant]
     Active Substance: SODIUM CHLORIDE
     Dosage: UNK
     Route: 042
  49. SODIUM CHLORIDE [Concomitant]
     Active Substance: SODIUM CHLORIDE
     Dosage: UNK
     Route: 042
     Dates: start: 20170610
  50. SODIUM CHLORIDE [Concomitant]
     Active Substance: SODIUM CHLORIDE
     Dosage: UNK
     Route: 042
     Dates: start: 20170611
  51. SODIUM CHLORIDE [Concomitant]
     Active Substance: SODIUM CHLORIDE
     Dosage: UNK
     Route: 042
     Dates: start: 20170612
  52. SODIUM CHLORIDE [Concomitant]
     Active Substance: SODIUM CHLORIDE
     Dosage: UNK
     Route: 042
     Dates: start: 20170613
  53. SODIUM CHLORIDE [Concomitant]
     Active Substance: SODIUM CHLORIDE
     Dosage: UNK
     Route: 042
     Dates: start: 20170611
  54. SODIUM CHLORIDE [Concomitant]
     Active Substance: SODIUM CHLORIDE
     Dosage: UNK
     Route: 042
     Dates: start: 20170609
  55. SODIUM CHLORIDE [Concomitant]
     Active Substance: SODIUM CHLORIDE
     Dosage: UNK
     Route: 042
     Dates: start: 20170612
  56. DEXTROSE [Concomitant]
     Active Substance: DEXTROSE
     Indication: Product used for unknown indication
     Dosage: UNK
     Route: 042
     Dates: start: 20170612
  57. DEXTROSE [Concomitant]
     Active Substance: DEXTROSE
     Dosage: UNK
     Route: 065
     Dates: start: 20170612
  58. DEXTROSE [Concomitant]
     Active Substance: DEXTROSE
     Dosage: UNK
     Route: 042
     Dates: start: 20170611
  59. DEXERYL                            /00557601/ [Concomitant]
     Indication: Product used for unknown indication
     Dosage: UNK
     Route: 061
     Dates: start: 20170612
  60. DEXERYL                            /00557601/ [Concomitant]
     Dosage: UNK
     Route: 061
     Dates: start: 20170611
  61. TRAMADOL HYDROCHLORIDE [Concomitant]
     Active Substance: TRAMADOL HYDROCHLORIDE
     Indication: Pain
     Dosage: UNK
     Route: 042
     Dates: start: 20170611
  62. PLATELETS [Concomitant]
     Active Substance: HUMAN PLATELET, ALLOGENIC
     Indication: Product used for unknown indication
     Dosage: 1 IU [IU], BID
     Route: 065
     Dates: start: 20170610
  63. PLATELETS [Concomitant]
     Active Substance: HUMAN PLATELET, ALLOGENIC
     Dosage: 1 IU [IU], BID
     Route: 065
     Dates: start: 20170612
  64. PLATELETS [Concomitant]
     Active Substance: HUMAN PLATELET, ALLOGENIC
     Dosage: 1 IU [IU], BID
     Route: 042
     Dates: start: 20170609
  65. LASIX [Concomitant]
     Active Substance: FUROSEMIDE
     Indication: Product used for unknown indication
     Dosage: 40 MG, QD
     Route: 040
     Dates: start: 20170613
  66. PLASMA PROTEIN SOLUTION [Concomitant]
     Indication: Product used for unknown indication
     Dosage: UNK
     Route: 065
     Dates: start: 20170612
  67. BLINATUMOMAB [Concomitant]
     Active Substance: BLINATUMOMAB
     Indication: Philadelphia positive acute lymphocytic leukaemia
     Dosage: UNK
     Route: 065
     Dates: start: 20160726, end: 20160824
  68. BLINATUMOMAB [Concomitant]
     Active Substance: BLINATUMOMAB
     Dosage: UNK
     Route: 065
     Dates: start: 20160906, end: 20161005
  69. MORPHINE HYDROCHLORIDE [Concomitant]
     Active Substance: MORPHINE HYDROCHLORIDE
     Indication: Pain
     Dosage: UNK
     Route: 042
     Dates: start: 20170611
  70. MORPHINE HYDROCHLORIDE [Concomitant]
     Active Substance: MORPHINE HYDROCHLORIDE
     Indication: Product used for unknown indication
     Dosage: 25 MG, QD, 5X5MG
     Route: 058
     Dates: start: 20170613
  71. MORPHINE HYDROCHLORIDE [Concomitant]
     Active Substance: MORPHINE HYDROCHLORIDE
     Indication: Dyspnoea
     Dosage: UNK
     Route: 042
     Dates: start: 20170613
  72. MORPHINE HYDROCHLORIDE [Concomitant]
     Active Substance: MORPHINE HYDROCHLORIDE
     Dosage: 20 MG, QD, 4X5 MG
     Route: 040
     Dates: start: 20170613
  73. MORPHINE HYDROCHLORIDE [Concomitant]
     Active Substance: MORPHINE HYDROCHLORIDE
     Dosage: UNK
     Route: 042
     Dates: start: 20170612
  74. MORPHINE HYDROCHLORIDE [Concomitant]
     Active Substance: MORPHINE HYDROCHLORIDE
     Dosage: 5 MG, QD
     Route: 040
     Dates: start: 20170612
  75. MORPHINE HYDROCHLORIDE [Concomitant]
     Active Substance: MORPHINE HYDROCHLORIDE
     Dosage: 20 MG, QD, 4X5 MG
     Route: 040
     Dates: start: 20170611
  76. MORPHINE HYDROCHLORIDE [Concomitant]
     Active Substance: MORPHINE HYDROCHLORIDE
     Dosage: 5 MG, QD
     Route: 058
     Dates: start: 20170611
  77. MORPHINE HYDROCHLORIDE [Concomitant]
     Active Substance: MORPHINE HYDROCHLORIDE
     Dosage: UNK
     Route: 042
  78. DAFALGAN [Concomitant]
     Active Substance: ACETAMINOPHEN
     Indication: Product used for unknown indication
     Dosage: 1000 MG, QD
     Route: 048
     Dates: start: 20170610
  79. DAFALGAN [Concomitant]
     Active Substance: ACETAMINOPHEN
     Dosage: 1000 MG, QD
     Route: 048
     Dates: start: 20170611
  80. AUGMENTIN                          /00756801/ [Concomitant]
     Indication: Product used for unknown indication
     Dosage: UNK
     Route: 048
  81. TEMESTA                            /00273201/ [Concomitant]
     Indication: Insomnia
     Dosage: 1 MG, QD
     Route: 048
     Dates: start: 20170612
  82. TEMESTA                            /00273201/ [Concomitant]
     Dosage: 1 MG, QD
     Route: 048
     Dates: start: 20170610
  83. TEMESTA                            /00273201/ [Concomitant]
     Dosage: 1 MG, QD
     Route: 048
     Dates: start: 20170611
  84. TEMESTA                            /00273201/ [Concomitant]
     Dosage: 1 MG, QD
     Route: 048
     Dates: start: 20170613
  85. HUMAN RED BLOOD CELL [Concomitant]
     Active Substance: HUMAN RED BLOOD CELL
     Indication: Product used for unknown indication
     Dosage: 1 IU [IU], QD
     Route: 065
     Dates: start: 20170612
  86. HUMAN RED BLOOD CELL [Concomitant]
     Active Substance: HUMAN RED BLOOD CELL
     Dosage: 1 IU [IU], QD
     Route: 042
     Dates: start: 20170610
  87. SALINE                             /00075401/ [Concomitant]
     Indication: Product used for unknown indication
     Dosage: 2 DF, UNK, 2 INJECTIONS
     Route: 040
     Dates: start: 20170609
  88. POTASSIUM CHLORIDE [Concomitant]
     Active Substance: POTASSIUM CHLORIDE
     Indication: Product used for unknown indication
     Dosage: UNK
     Route: 042
  89. ASPIRIN [Concomitant]
     Active Substance: ASPIRIN
     Indication: Product used for unknown indication
     Dosage: UNK
     Route: 065

REACTIONS (22)
  - Night sweats [Not Recovered/Not Resolved]
  - Bone pain [Not Recovered/Not Resolved]
  - Upper respiratory tract infection [Not Recovered/Not Resolved]
  - Constipation [Not Recovered/Not Resolved]
  - Peripheral sensory neuropathy [Not Recovered/Not Resolved]
  - Fatigue [Not Recovered/Not Resolved]
  - Infusion related reaction [Not Recovered/Not Resolved]
  - Epistaxis [Not Recovered/Not Resolved]
  - Palpitations [Not Recovered/Not Resolved]
  - Nausea [Recovered/Resolved]
  - Herpes simplex [Not Recovered/Not Resolved]
  - Eczema asteatotic [Not Recovered/Not Resolved]
  - Anaemia [Not Recovered/Not Resolved]
  - Arthralgia [Not Recovered/Not Resolved]
  - Paraesthesia [Not Recovered/Not Resolved]
  - Mouth haemorrhage [Not Recovered/Not Resolved]
  - Tinnitus [Not Recovered/Not Resolved]
  - Rash [Not Recovered/Not Resolved]
  - Thrombocytopenia [Not Recovered/Not Resolved]
  - Decreased appetite [Not Recovered/Not Resolved]
  - Dyspnoea [Not Recovered/Not Resolved]
  - Hypovitaminosis [Not Recovered/Not Resolved]

NARRATIVE: CASE EVENT DATE: 20161230
